FAERS Safety Report 4474310-6 (Version None)
Quarter: 2004Q4

REPORT INFORMATION
  Report Type: 
  Country: None (occurrence: None)
  Receive Date: 20041008
  Receipt Date: 20040924
  Transmission Date: 20050328
  Serious: Yes (Hospitalization, Other)
  Sender: FDA-Public Use
  Company Number: USA-2004-0016917

PATIENT
  Age: 63 Year
  Sex: Male

DRUGS (2)
  1. OXYCONTIN [Suspect]
     Indication: PAIN
     Dosage: SEE IMAGE
  2. PERCOCET [Suspect]
     Indication: MIGRAINE
     Dosage: MG
     Dates: start: 20041111

REACTIONS (8)
  - ANAEMIA [None]
  - HEPATIC FUNCTION ABNORMAL [None]
  - INADEQUATE ANALGESIA [None]
  - MIGRAINE [None]
  - MULTIPLE DRUG OVERDOSE [None]
  - PAIN EXACERBATED [None]
  - RESPIRATORY DEPRESSION [None]
  - SOMNOLENCE [None]
